FAERS Safety Report 16294252 (Version 1)
Quarter: 2019Q2

REPORT INFORMATION
  Report Type: Spontaneous
  Country: US (occurrence: US)
  Receive Date: 20190509
  Receipt Date: 20190509
  Transmission Date: 20190711
  Serious: No
  Sender: FDA-Public Use
  Company Number: US-ROCHE-2157995

PATIENT
  Sex: Male
  Weight: 66.74 kg

DRUGS (4)
  1. ESBRIET [Suspect]
     Active Substance: PIRFENIDONE
     Indication: PULMONARY FIBROSIS
     Route: 065
     Dates: start: 20180601
  2. ESBRIET [Suspect]
     Active Substance: PIRFENIDONE
     Dosage: 2 PILLS 3 TIMES A DAY ;ONGOING: NO
     Route: 065
  3. ESBRIET [Suspect]
     Active Substance: PIRFENIDONE
     Dosage: 3 PILLS 3 TIMES A DAY ;ONGOING: NO
     Route: 065
  4. ESBRIET [Suspect]
     Active Substance: PIRFENIDONE
     Dosage: ONE PILL THREE TIMES A DAY
     Route: 065
     Dates: start: 20180602

REACTIONS (9)
  - Feeling abnormal [Unknown]
  - Malaise [Unknown]
  - Dyspnoea [Unknown]
  - Vomiting [Unknown]
  - Weight decreased [Unknown]
  - Chest discomfort [Unknown]
  - Hypoaesthesia [Unknown]
  - Decreased appetite [Unknown]
  - Asthenia [Unknown]
